FAERS Safety Report 19650328 (Version 1)
Quarter: 2021Q3

REPORT INFORMATION
  Report Type: Spontaneous
  Country: US (occurrence: US)
  Receive Date: 20210802
  Receipt Date: 20210802
  Transmission Date: 20211014
  Serious: Yes (Hospitalization)
  Sender: FDA-Public Use
  Company Number: None

PATIENT
  Age: 53 Year
  Sex: Male
  Weight: 60 kg

DRUGS (2)
  1. VANCOMYCIN (VANCOMYCIN HCL 1GM/VIL INJ) [Suspect]
     Active Substance: VANCOMYCIN HYDROCHLORIDE
     Indication: SEPSIS
     Route: 042
     Dates: start: 20210523, end: 20210523
  2. PIPERACILLIN/TAZOBACTAM (PIPERACILLIN NA 3GM/TAZOBACTAM 0.375GM.50ML [Suspect]
     Active Substance: PIPERACILLIN SODIUM\TAZOBACTAM SODIUM
     Route: 042
     Dates: start: 20210523, end: 20210530

REACTIONS (4)
  - Thrombocytopenia [None]
  - Acute kidney injury [None]
  - Alcohol use [None]
  - Hepatic cirrhosis [None]

NARRATIVE: CASE EVENT DATE: 20210523
